FAERS Safety Report 8100223-4 (Version None)
Quarter: 2012Q1

REPORT INFORMATION
  Report Type: 
  Country: None (occurrence: None)
  Receive Date: 20120131
  Receipt Date: 20120124
  Transmission Date: 20120608
  Serious: Yes (Other)
  Sender: FDA-Public Use
  Company Number: DK-PFIZER INC-2011265480

PATIENT
  Age: 19 Year
  Sex: Female

DRUGS (1)
  1. ZITHROMAX [Suspect]
     Indication: PNEUMONIA
     Dosage: 500 MG, 1X/DAY IN THREE DAYS
     Route: 048
     Dates: start: 20110806

REACTIONS (8)
  - BONE MARROW FAILURE [None]
  - GASTROINTESTINAL DISORDER [None]
  - NEOPLASM MALIGNANT [None]
  - DIARRHOEA [None]
  - LEUKAEMIA [None]
  - LEUKOPENIA [None]
  - FATIGUE [None]
  - PYREXIA [None]
